FAERS Safety Report 10655253 (Version 1)
Quarter: 2014Q4

REPORT INFORMATION
  Report Type: Spontaneous
  Country: US (occurrence: None)
  Receive Date: 20141215
  Receipt Date: 20141215
  Transmission Date: 20150529
  Serious: Yes (Other)
  Sender: FDA-Public Use
  Company Number: None

PATIENT
  Age: 44 Year
  Sex: Female
  Weight: 54.43 kg

DRUGS (1)
  1. CORTEF [Suspect]
     Active Substance: HYDROCORTISONE
     Indication: ADDISON^S DISEASE
     Dosage: 3-5
     Route: 048
     Dates: start: 20140601, end: 20141127

REACTIONS (12)
  - Malaise [None]
  - Maternal exposure during pregnancy [None]
  - Abortion spontaneous [None]
  - Vomiting [None]
  - Asthenia [None]
  - Product substitution issue [None]
  - Product quality issue [None]
  - Nausea [None]
  - Drug ineffective [None]
  - Pregnancy [None]
  - Abnormal loss of weight [None]
  - Disturbance in attention [None]

NARRATIVE: CASE EVENT DATE: 20140601
